FAERS Safety Report 7321714-X (Version None)
Quarter: 2011Q1

REPORT INFORMATION
  Report Type: 
  Country: None (occurrence: None)
  Receive Date: 20110228
  Receipt Date: 20110222
  Transmission Date: 20110831
  Serious: Yes (Hospitalization)
  Sender: FDA-Public Use
  Company Number: US-PFIZER INC-US-WYE-H18038710

PATIENT
  Sex: Female
  Weight: 83.9 kg

DRUGS (8)
  1. KLONOPIN [Concomitant]
     Indication: SLEEP DISORDER
     Dosage: 0.2 MG, AS NEEDED
  2. PRISTIQ [Suspect]
     Indication: DEPRESSION
     Dosage: 50 MG, 1X/DAY
     Route: 048
     Dates: start: 20100901
  3. CARBIDOPA + LEVODOPA [Concomitant]
     Indication: RESTLESS LEGS SYNDROME
     Dosage: UNK
  4. PRISTIQ [Suspect]
     Indication: OBSESSIVE-COMPULSIVE DISORDER
     Dosage: 50 MG, DAILY
     Route: 048
     Dates: start: 20100101
  5. KLONOPIN [Concomitant]
     Dosage: UNK
  6. WELLBUTRIN [Concomitant]
     Indication: DEPRESSION
     Dosage: UNK
  7. KLONOPIN [Concomitant]
     Indication: ANXIETY
     Dosage: 1 MG, UNK
  8. WELLBUTRIN [Concomitant]
     Indication: OBSESSIVE-COMPULSIVE DISORDER

REACTIONS (7)
  - LOCALISED INFECTION [None]
  - RESTLESS LEGS SYNDROME [None]
  - WITHDRAWAL SYNDROME [None]
  - DRUG INEFFECTIVE [None]
  - CHONDROCALCINOSIS PYROPHOSPHATE [None]
  - DEPRESSION [None]
  - WEIGHT INCREASED [None]
